FAERS Safety Report 13107881 (Version 1)
Quarter: 2017Q1

REPORT INFORMATION
  Report Type: Spontaneous
  Country: US (occurrence: US)
  Receive Date: 20170112
  Receipt Date: 20170112
  Transmission Date: 20170428
  Serious: No
  Sender: FDA-Public Use
  Company Number: US-ORION CORPORATION ORION PHARMA-ENTC2016-0083

PATIENT
  Sex: Female

DRUGS (2)
  1. STALEVO [Suspect]
     Active Substance: CARBIDOPA\ENTACAPONE\LEVODOPA
     Route: 065
  2. STALEVO [Suspect]
     Active Substance: CARBIDOPA\ENTACAPONE\LEVODOPA
     Indication: PARKINSON^S DISEASE
     Route: 048

REACTIONS (10)
  - Frustration tolerance decreased [Unknown]
  - Feeling abnormal [Unknown]
  - Dyskinesia [Unknown]
  - Blister [Unknown]
  - Reaction to colouring [Unknown]
  - Wound secretion [Unknown]
  - Pain in extremity [Unknown]
  - Restlessness [Unknown]
  - Skin discolouration [Unknown]
  - Skin disorder [Unknown]

NARRATIVE: CASE EVENT DATE: 20160126
